FAERS Safety Report 8270090-7 (Version None)
Quarter: 2012Q2

REPORT INFORMATION
  Report Type: 
  Country: None (occurrence: None)
  Receive Date: 20120410
  Receipt Date: 20120404
  Transmission Date: 20120825
  Serious: Yes (Death, Hospitalization)
  Sender: FDA-Public Use
  Company Number: JP-JNJFOC-20090809398

PATIENT
  Sex: Female
  Weight: 51 kg

DRUGS (12)
  1. DOXIL [Suspect]
     Dosage: CYCLE 1
     Route: 042
     Dates: start: 20090603, end: 20090603
  2. DECADRON [Concomitant]
     Route: 048
     Dates: start: 20090630, end: 20090705
  3. DOCETAXEL [Suspect]
     Dosage: 3 CYCLES COMPLETED
     Route: 065
     Dates: end: 20090301
  4. RAMOSETRON HYDROCHLORIDE [Concomitant]
     Indication: PROPHYLAXIS
     Route: 042
     Dates: start: 20090701, end: 20090702
  5. THIAMINE MONOPHOSPHATE DISULFIDE [Concomitant]
     Indication: PROPHYLAXIS
     Route: 042
     Dates: start: 20090701, end: 20090702
  6. DECADRON [Concomitant]
     Route: 048
     Dates: start: 20090706, end: 20090706
  7. DOCETAXEL [Suspect]
     Indication: ILL-DEFINED DISORDER
     Dosage: 5 CYCLES COMPLETED
     Route: 065
     Dates: end: 20081113
  8. DECADRON [Concomitant]
     Indication: PROPHYLAXIS
     Route: 048
     Dates: start: 20090707, end: 20090707
  9. ASTOMIN [Concomitant]
     Route: 048
     Dates: start: 20090726, end: 20090730
  10. DOXIL [Suspect]
     Indication: OVARIAN CANCER RECURRENT
     Dosage: CYCLE 2
     Route: 042
     Dates: start: 20090701, end: 20090701
  11. GEMCITABINE [Suspect]
     Indication: ILL-DEFINED DISORDER
     Dosage: 3 CYCLES COMPLETED
     Route: 065
     Dates: end: 20090324
  12. AZUNOL [Concomitant]
     Indication: APHTHOUS STOMATITIS
     Route: 049
     Dates: start: 20090721

REACTIONS (2)
  - OVARIAN CANCER RECURRENT [None]
  - INTERSTITIAL LUNG DISEASE [None]
